FAERS Safety Report 15058780 (Version 1)
Quarter: 2018Q2

REPORT INFORMATION
  Report Type: Spontaneous
  Country: US (occurrence: US)
  Receive Date: 20180625
  Receipt Date: 20180625
  Transmission Date: 20180711
  Serious: Yes (Death, Other)
  Sender: FDA-Public Use
  Company Number: US-WEST-WARD PHARMACEUTICALS CORP.-US-H14001-18-05066

PATIENT
  Sex: Female

DRUGS (1)
  1. HEPARIN [Suspect]
     Active Substance: HEPARIN SODIUM
     Indication: PRODUCT USED FOR UNKNOWN INDICATION
     Route: 065

REACTIONS (11)
  - Systemic lupus erythematosus [Unknown]
  - Epilepsy [Unknown]
  - Glomerulonephritis chronic [Unknown]
  - Ruptured cerebral aneurysm [Unknown]
  - Subarachnoid haemorrhage [Unknown]
  - End stage renal disease [Unknown]
  - Herpes zoster [Unknown]
  - Intracranial pressure increased [Unknown]
  - Death [Fatal]
  - Acute respiratory failure [Unknown]
  - Embolism venous [Unknown]
